FAERS Safety Report 7988895 (Version 2)
Quarter: 2012Q4

REPORT INFORMATION
  Report Type: 
  Country: CA (occurrence: CA)
  Receive Date: 20110613
  Receipt Date: 20121107
  Transmission Date: 20130627
  Serious: Yes (Death, Hospitalization)
  Sender: FDA-Public Use
  Company Number: PHMT2007CA02172

PATIENT
  Sex: Female

DRUGS (1)
  1. SANDOSTATIN LAR [Suspect]
     Indication: PANCREATIC CARCINOMA
     Dosage: 20 mg every 4 weeks
     Route: 030
     Dates: start: 20070911, end: 20071109

REACTIONS (5)
  - Death [Fatal]
  - Thrombosis [Unknown]
  - Pyrexia [Unknown]
  - Blood pressure decreased [Unknown]
  - Heart rate increased [Unknown]
